FAERS Safety Report 5133943-4 (Version None)
Quarter: 2006Q4

REPORT INFORMATION
  Report Type: 
  Country: None (occurrence: None)
  Receive Date: 20061019
  Receipt Date: 20061009
  Transmission Date: 20070319
  Serious: Yes (Other)
  Sender: FDA-Public Use
  Company Number: B0441791A

PATIENT
  Age: 55 Year
  Sex: Male

DRUGS (2)
  1. ALBENZA [Suspect]
     Indication: ECHINOCOCCIASIS
     Dosage: 5 GRAM (S) / TWICE PER DAY/ ORAL
     Route: 048
  2. PREDNISONE TAB [Concomitant]

REACTIONS (17)
  - AGGRESSION [None]
  - APATHY [None]
  - BLINDNESS [None]
  - BRAIN OEDEMA [None]
  - COGNITIVE DISORDER [None]
  - COMA [None]
  - DEPRESSED LEVEL OF CONSCIOUSNESS [None]
  - ENURESIS [None]
  - GAIT DISTURBANCE [None]
  - GRAND MAL CONVULSION [None]
  - HEADACHE [None]
  - HYPOREFLEXIA [None]
  - INTRACRANIAL PRESSURE INCREASED [None]
  - NUCHAL RIGIDITY [None]
  - SYNCOPE [None]
  - VISUAL DISTURBANCE [None]
  - VOMITING [None]
